FAERS Safety Report 5593210-1 (Version None)
Quarter: 2008Q1

REPORT INFORMATION
  Report Type: 
  Country: None (occurrence: None)
  Receive Date: 20080115
  Receipt Date: 20080115
  Transmission Date: 20080703
  Serious: Yes (Life-Threatening, Hospitalization)
  Sender: FDA-Public Use
  Company Number: None

PATIENT
  Age: 40 Year
  Sex: Female
  Weight: 56.6996 kg

DRUGS (1)
  1. CHANTIX [Suspect]
     Indication: SMOKING CESSATION THERAPY
     Dosage: 2
     Dates: start: 20071010, end: 20071123

REACTIONS (5)
  - ABNORMAL BEHAVIOUR [None]
  - DEPRESSION [None]
  - MOOD SWINGS [None]
  - PSYCHOTIC DISORDER [None]
  - SUICIDAL IDEATION [None]
